FAERS Safety Report 7068276-2 (Version None)
Quarter: 2010Q4

REPORT INFORMATION
  Report Type: 
  Country: None (occurrence: None)
  Receive Date: 20101028
  Receipt Date: 20101019
  Transmission Date: 20110411
  Serious: Yes (Other)
  Sender: FDA-Public Use
  Company Number: DE-JNJFOC-20101005508

PATIENT
  Age: 39 Year
  Sex: Male

DRUGS (1)
  1. TAVANIC [Suspect]
     Indication: RESPIRATORY TRACT INFECTION
     Route: 048

REACTIONS (2)
  - PANIC ATTACK [None]
  - TACHYCARDIA [None]
